FAERS Safety Report 8192100-8 (Version None)
Quarter: 2012Q1

REPORT INFORMATION
  Report Type: 
  Country: None (occurrence: None)
  Receive Date: 20120307
  Receipt Date: 20120229
  Transmission Date: 20120608
  Serious: Yes (Death)
  Sender: FDA-Public Use
  Company Number: GR-ASTRAZENECA-2012SE11071

PATIENT
  Age: 61 Year
  Sex: Male

DRUGS (4)
  1. SALOSPIR [Concomitant]
     Indication: ACUTE CORONARY SYNDROME
     Route: 048
  2. BRILIQUE [Suspect]
     Indication: ACUTE CORONARY SYNDROME
     Route: 048
     Dates: start: 20120201
  3. BRILIQUE [Suspect]
     Route: 048
     Dates: start: 20120201
  4. HEPARIN [Concomitant]
     Indication: ACUTE CORONARY SYNDROME
     Route: 042

REACTIONS (1)
  - CEREBRAL HAEMORRHAGE [None]
